FAERS Safety Report 13512878 (Version 2)
Quarter: 2017Q2

REPORT INFORMATION
  Report Type: Spontaneous
  Country: US (occurrence: US)
  Receive Date: 20170504
  Receipt Date: 20170525
  Transmission Date: 20170830
  Serious: No
  Sender: FDA-Public Use
  Company Number: US-ASTRAZENECA-2017SE43053

PATIENT
  Sex: Male

DRUGS (1)
  1. PULMICORT FLEXHALER [Suspect]
     Active Substance: BUDESONIDE
     Route: 055
     Dates: start: 20170409

REACTIONS (5)
  - Product quality issue [Unknown]
  - Dyspnoea [Unknown]
  - Asthma [Unknown]
  - Device difficult to use [Unknown]
  - Drug ineffective [Unknown]
